FAERS Safety Report 7911800-5 (Version None)
Quarter: 2011Q4

REPORT INFORMATION
  Report Type: 
  Country: None (occurrence: None)
  Receive Date: 20111114
  Receipt Date: 20111114
  Transmission Date: 20120403
  Serious: Yes (Life-Threatening)
  Sender: FDA-Public Use
  Company Number: None

PATIENT
  Age: 25 Year
  Sex: Male
  Weight: 81.646 kg

DRUGS (1)
  1. SEROQUEL [Suspect]
     Indication: MOOD ALTERED
     Dosage: 25MG
     Route: 048
     Dates: start: 20111113, end: 20111114

REACTIONS (17)
  - TREMOR [None]
  - ABASIA [None]
  - ANGER [None]
  - FEELING ABNORMAL [None]
  - MUSCLE TWITCHING [None]
  - ANGINA PECTORIS [None]
  - MOVEMENT DISORDER [None]
  - EMOTIONAL DISORDER [None]
  - DYSARTHRIA [None]
  - IRRITABILITY [None]
  - MIDDLE INSOMNIA [None]
  - CRYING [None]
  - CHEST PAIN [None]
  - DYSPHEMIA [None]
  - MUSCLE SPASMS [None]
  - HYPERHIDROSIS [None]
  - AFFECTIVE DISORDER [None]
